FAERS Safety Report 5704402-2 (Version None)
Quarter: 2008Q2

REPORT INFORMATION
  Report Type: 
  Country: None (occurrence: None)
  Receive Date: 20080414
  Receipt Date: 20080408
  Transmission Date: 20081010
  Serious: Yes (Life-Threatening, Hospitalization, Disabling)
  Sender: FDA-Public Use
  Company Number: B0507912A

PATIENT
  Age: 69 Year
  Sex: Male

DRUGS (5)
  1. ZIAGEN [Suspect]
     Indication: HIV INFECTION
     Dosage: 300MG TWICE PER DAY
     Route: 048
     Dates: start: 20061220
  2. LAMIVUDINE [Concomitant]
     Indication: HIV INFECTION
     Dosage: 150MG PER DAY
     Route: 048
     Dates: start: 20061220
  3. NEVIRAPINE [Concomitant]
     Indication: HIV INFECTION
     Dosage: 200MG TWICE PER DAY
     Route: 048
     Dates: start: 20000201
  4. COZAAR [Concomitant]
     Indication: HYPERTENSION
  5. ANTIHYPERTENSIVE (UNSPECIFIED) [Concomitant]
     Indication: HYPERTENSION

REACTIONS (1)
  - ISCHAEMIC STROKE [None]
